FAERS Safety Report 23844194 (Version 1)
Quarter: 2024Q2

REPORT INFORMATION
  Report Type: Report from Study
  Country: PH (occurrence: PH)
  Receive Date: 20240510
  Receipt Date: 20240510
  Transmission Date: 20240715
  Serious: Yes (Hospitalization)
  Sender: FDA-Public Use
  Company Number: PH-OTSUKA-2024_010095

PATIENT
  Sex: Female

DRUGS (1)
  1. TOLVAPTAN [Suspect]
     Active Substance: TOLVAPTAN
     Indication: Urine abnormality
     Dosage: 1 DF, QD (15 MG 1 TABLET DAILY)
     Route: 048
     Dates: start: 20230401, end: 202305

REACTIONS (2)
  - Hypoglycaemia [Unknown]
  - Dysuria [Unknown]
